FAERS Safety Report 8923510 (Version 1)
Quarter: 2012Q4

REPORT INFORMATION
  Report Type: 
  Country: US (occurrence: US)
  Receive Date: 20121123
  Receipt Date: 20121123
  Transmission Date: 20130627
  Serious: Yes (Hospitalization)
  Sender: FDA-Public Use
  Company Number: US-B.I. PHARMACEUTICALS,INC./RIDGEFIELD-2012-BI-00812BP

PATIENT
  Sex: Female

DRUGS (1)
  1. SPIRIVA [Suspect]
     Indication: SLEEP APNOEA SYNDROME
     Dosage: 18 mcg
     Route: 055

REACTIONS (2)
  - Condition aggravated [Recovered/Resolved]
  - Systemic lupus erythematosus [Not Recovered/Not Resolved]
